FAERS Safety Report 19177901 (Version 3)
Quarter: 2021Q4

REPORT INFORMATION
  Report Type: Report from Study
  Country: CA (occurrence: CA)
  Receive Date: 20210426
  Receipt Date: 20211004
  Transmission Date: 20220303
  Serious: Yes (Other)
  Sender: FDA-Public Use
  Company Number: CA-JNJFOC-20210436732

PATIENT
  Sex: Male

DRUGS (1)
  1. REMICADE [Suspect]
     Active Substance: INFLIXIMAB
     Indication: Crohn^s disease
     Dosage: 5.7 MG/KG?22-JAN-2015 THE PATIENT RECEIVED REMICADE INFUSION
     Route: 042
     Dates: start: 20130724

REACTIONS (2)
  - Staphylococcal infection [Unknown]
  - Skin infection [Recovering/Resolving]
